FAERS Safety Report 8118193-1 (Version None)
Quarter: 2012Q1

REPORT INFORMATION
  Report Type: 
  Country: None (occurrence: None)
  Receive Date: 20120131
  Receipt Date: 20120117
  Transmission Date: 20120608
  Serious: Yes (Other)
  Sender: FDA-Public Use
  Company Number: B0777641A

PATIENT
  Age: 17 Year
  Sex: Male

DRUGS (1)
  1. CLINDAMYCIN [Suspect]

REACTIONS (4)
  - KOUNIS SYNDROME [None]
  - ACUTE CORONARY SYNDROME [None]
  - ELECTROCARDIOGRAM ST SEGMENT ELEVATION [None]
  - MYOCARDIAL ISCHAEMIA [None]
